FAERS Safety Report 7206194-7 (Version None)
Quarter: 2010Q4

REPORT INFORMATION
  Report Type: 
  Country: None (occurrence: None)
  Receive Date: 20101221
  Receipt Date: 20101208
  Transmission Date: 20110411
  Serious: Yes (Other)
  Sender: FDA-Public Use
  Company Number: 012218

PATIENT
  Sex: Female

DRUGS (2)
  1. BUSULFEX [Suspect]
     Indication: BONE MARROW TRANSPLANT
     Dosage: 16 MG/KG,
  2. CYCLOPHOSPHAMIDE [Concomitant]

REACTIONS (11)
  - ACUTE GRAFT VERSUS HOST DISEASE IN INTESTINE [None]
  - ACUTE GRAFT VERSUS HOST DISEASE IN SKIN [None]
  - BODY HEIGHT BELOW NORMAL [None]
  - CARDIAC HYPERTROPHY [None]
  - DEVELOPMENTAL DELAY [None]
  - EPSTEIN-BARR VIRUS INFECTION [None]
  - HYPERTENSION [None]
  - INTRACRANIAL PRESSURE INCREASED [None]
  - MICROCEPHALY [None]
  - RENAL IMPAIRMENT [None]
  - RESPIRATORY FAILURE [None]
